FAERS Safety Report 6802828-7 (Version None)
Quarter: 2010Q2

REPORT INFORMATION
  Report Type: 
  Country: None (occurrence: None)
  Receive Date: 20100628
  Receipt Date: 20100617
  Transmission Date: 20101027
  Serious: Yes (Other)
  Sender: FDA-Public Use
  Company Number: PHHY2010TW17375

PATIENT
  Sex: Female

DRUGS (1)
  1. GLEEVEC [Suspect]
     Indication: GASTROINTESTINAL STROMAL TUMOUR
     Dosage: 400 UNK, UNK
     Route: 048
     Dates: start: 20091020

REACTIONS (4)
  - LIPOMA EXCISION [None]
  - LIPOMA OF BREAST [None]
  - PAIN IN EXTREMITY [None]
  - TUMOUR PAIN [None]
